FAERS Safety Report 16750503 (Version 2)
Quarter: 2019Q3

REPORT INFORMATION
  Report Type: Spontaneous
  Country: CA (occurrence: CA)
  Receive Date: 20190828
  Receipt Date: 20190926
  Transmission Date: 20191005
  Serious: Yes (Hospitalization)
  Sender: FDA-Public Use
  Company Number: CA-TARO PHARMACEUTICALS USA.,INC-2019SUN00424

PATIENT

DRUGS (2)
  1. BETADERM [Suspect]
     Active Substance: BETAMETHASONE VALERATE
     Indication: PSORIASIS
     Dosage: APPLIED TO THE SKIN TWICE DAILY
     Route: 061
     Dates: start: 201604, end: 201705
  2. OTEZLA [Suspect]
     Active Substance: APREMILAST
     Indication: PSORIASIS
     Dosage: UNK
     Route: 065
     Dates: start: 201705

REACTIONS (11)
  - Loss of consciousness [Unknown]
  - Epistaxis [Unknown]
  - Weight decreased [Unknown]
  - Diarrhoea [Recovered/Resolved]
  - Anal haemorrhage [Recovered/Resolved]
  - Faeces discoloured [Unknown]
  - Asthenia [Unknown]
  - Full blood count decreased [Unknown]
  - Gait disturbance [Unknown]
  - Decreased appetite [Recovered/Resolved]
  - Skin exfoliation [Unknown]
